FAERS Safety Report 23400319 (Version 2)
Quarter: 2024Q1

REPORT INFORMATION
  Report Type: Spontaneous
  Country: US (occurrence: US)
  Receive Date: 20240115
  Receipt Date: 20240116
  Transmission Date: 20240409
  Serious: No
  Sender: FDA-Public Use
  Company Number: US-UCBSA-2024001242

PATIENT
  Sex: Female

DRUGS (2)
  1. CETIRIZINE HYDROCHLORIDE [Suspect]
     Active Substance: CETIRIZINE HYDROCHLORIDE
     Indication: Product used for unknown indication
     Dosage: UNK
     Route: 065
  2. LEVOCETIRIZINE DIHYDROCHLORIDE [Suspect]
     Active Substance: LEVOCETIRIZINE DIHYDROCHLORIDE
     Indication: Product used for unknown indication
     Dosage: 5 MILLIGRAM, ONCE DAILY (QD),1 DOSAGE FORM)
     Route: 048
     Dates: start: 20231228

REACTIONS (4)
  - Asthenia [Unknown]
  - Feeling abnormal [Unknown]
  - Somnolence [Unknown]
  - Brain fog [Unknown]

NARRATIVE: CASE EVENT DATE: 20231201
